FAERS Safety Report 6663867-2 (Version None)
Quarter: 2010Q2

REPORT INFORMATION
  Report Type: 
  Country: None (occurrence: None)
  Receive Date: 20100401
  Receipt Date: 20100324
  Transmission Date: 20101027
  Serious: Yes (Hospitalization, Disabling)
  Sender: FDA-Public Use
  Company Number: JP-MERCK-0707USA01575

PATIENT
  Age: 81 Year
  Sex: Female

DRUGS (8)
  1. FOSAMAX [Suspect]
     Indication: OSTEOPOROSIS
     Route: 048
     Dates: start: 20070101, end: 20070701
  2. FOSAMAX [Suspect]
     Route: 048
     Dates: start: 20031001, end: 20070101
  3. FOSAMAX [Suspect]
     Route: 048
     Dates: start: 20090401
  4. RIMATIL [Suspect]
     Indication: MUSCULOSKELETAL PAIN
     Route: 048
     Dates: start: 20050729
  5. PREDNISOLONE [Suspect]
     Indication: MUSCULOSKELETAL PAIN
     Route: 048
     Dates: start: 20030101, end: 20070329
  6. PREDNISOLONE [Suspect]
     Route: 048
     Dates: start: 20070330
  7. SOLETON [Concomitant]
     Indication: MUSCULOSKELETAL PAIN
     Route: 048
     Dates: start: 20050727
  8. FLURBIPROFEN [Concomitant]
     Route: 065
     Dates: start: 20051111

REACTIONS (3)
  - ABSCESS JAW [None]
  - OSTEOMYELITIS [None]
  - OSTEONECROSIS [None]
